FAERS Safety Report 6079984-4 (Version None)
Quarter: 2009Q1

REPORT INFORMATION
  Report Type: 
  Country: None (occurrence: None)
  Receive Date: 20090217
  Receipt Date: 20081124
  Transmission Date: 20090719
  Serious: No
  Sender: FDA-Public Use
  Company Number: A0757888A

PATIENT
  Age: 63 Year
  Sex: Male

DRUGS (11)
  1. COREG CR [Suspect]
     Dosage: 40MG PER DAY
     Route: 048
     Dates: start: 20080901
  2. METFORMIN HCL [Concomitant]
  3. JANUVIA [Concomitant]
  4. COUMADIN [Concomitant]
  5. ASPIRIN [Concomitant]
  6. POTASSIUM CHLORIDE [Concomitant]
  7. BUMETANIDE [Concomitant]
  8. AMARYL [Concomitant]
  9. VASOTEC [Concomitant]
  10. PRILOSEC [Concomitant]
  11. ACETAMINOPHEN W/ CODEINE TAB [Concomitant]

REACTIONS (3)
  - ABDOMINAL DISTENSION [None]
  - COMPUTERISED TOMOGRAM ABNORMAL [None]
  - OEDEMA PERIPHERAL [None]
